FAERS Safety Report 7494554-9 (Version None)
Quarter: 2011Q2

REPORT INFORMATION
  Report Type: 
  Country: None (occurrence: None)
  Receive Date: 20110520
  Receipt Date: 20110511
  Transmission Date: 20111010
  Serious: Yes (Disabling, Other)
  Sender: FDA-Public Use
  Company Number: PHHY2010US36837

PATIENT
  Sex: Female

DRUGS (8)
  1. ASPIRIN [Concomitant]
     Dosage: UNK
  2. TEARS NATURALE [Suspect]
     Dosage: UNK,
  3. HYPOTEARS PF [Suspect]
     Dosage: UNK,
  4. TRAMADOL HCL [Concomitant]
     Dosage: UNK, PRN
  5. GENTEAL MODERATE LUBRICANT EYE DROPS [Suspect]
     Dosage: UNK,
  6. OMEPRAZOLE [Concomitant]
     Dosage: UNK
  7. MIACALCIN [Suspect]
     Dosage: UNK,ONCE DAILY
  8. METOPROLOL SUCCINATE [Concomitant]
     Dosage: UNK

REACTIONS (5)
  - PAIN [None]
  - FRACTURE [None]
  - EYE HAEMORRHAGE [None]
  - EYE IRRITATION [None]
  - DRUG INEFFECTIVE [None]
